FAERS Safety Report 14467319 (Version 2)
Quarter: 2018Q1

REPORT INFORMATION
  Report Type: Report from Study
  Country: CA (occurrence: CA)
  Receive Date: 20180131
  Receipt Date: 20180301
  Transmission Date: 20180509
  Serious: Yes (Hospitalization)
  Sender: FDA-Public Use
  Company Number: CA-BAYER-2016-208275

PATIENT
  Sex: Male
  Weight: 87.8 kg

DRUGS (4)
  1. COPANLISIB [Suspect]
     Active Substance: COPANLISIB
     Indication: TESTICULAR CANCER METASTATIC
     Dosage: DAILY DOSE 60 MG
     Route: 042
     Dates: start: 20161018, end: 20161018
  2. DILAUDID [Concomitant]
     Active Substance: HYDROMORPHONE HYDROCHLORIDE
     Indication: ABDOMINAL PAIN
     Dosage: UNK
     Route: 048
     Dates: start: 20161027, end: 20161028
  3. MAXERAN [Concomitant]
     Active Substance: METOCLOPRAMIDE HYDROCHLORIDE
     Indication: NAUSEA
     Dosage: UNK
     Route: 048
     Dates: start: 20161018
  4. RIFAMPICIN [Suspect]
     Active Substance: RIFAMPIN
     Indication: TESTICULAR CANCER METASTATIC

REACTIONS (1)
  - Pancreatitis [Recovered/Resolved with Sequelae]

NARRATIVE: CASE EVENT DATE: 20161027
